FAERS Safety Report 13216604 (Version 1)
Quarter: 2017Q1

REPORT INFORMATION
  Report Type: Report from Study
  Country: None (occurrence: FR)
  Receive Date: 20170210
  Receipt Date: 20170210
  Transmission Date: 20170428
  Serious: Yes (Other)
  Sender: FDA-Public Use
  Company Number: FR-BIOVITRUM-2017FR0154

PATIENT
  Age: 8 Year
  Sex: Female

DRUGS (1)
  1. ORFADIN [Suspect]
     Active Substance: NITISINONE
     Indication: TYROSINAEMIA

REACTIONS (1)
  - Speech disorder developmental [Not Recovered/Not Resolved]

NARRATIVE: CASE EVENT DATE: 20130307
